FAERS Safety Report 20323895 (Version 2)
Quarter: 2022Q2

REPORT INFORMATION
  Report Type: Report from Study
  Country: US (occurrence: US)
  Receive Date: 20220111
  Receipt Date: 20220510
  Transmission Date: 20220721
  Serious: Yes (Other)
  Sender: FDA-Public Use
  Company Number: US-KOREA IPSEN Pharma-2022-00491

PATIENT
  Age: 55 Year
  Sex: Male

DRUGS (4)
  1. SOMATULINE DEPOT [Suspect]
     Active Substance: LANREOTIDE ACETATE
     Indication: Carcinoid syndrome
     Dosage: 120 MG/0.5 ML
     Route: 058
     Dates: start: 202002
  2. TEMOZOLOMIDE [Suspect]
     Active Substance: TEMOZOLOMIDE
     Indication: Product used for unknown indication
  3. CAPECITABINE [Suspect]
     Active Substance: CAPECITABINE
     Indication: Product used for unknown indication
  4. DEVICE\INSULIN NOS [Suspect]
     Active Substance: DEVICE\INSULIN NOS
     Indication: Diabetes mellitus

REACTIONS (8)
  - Type 1 diabetes mellitus [Recovering/Resolving]
  - Injection site pain [Recovering/Resolving]
  - Blood glucose fluctuation [Recovering/Resolving]
  - Feeling abnormal [Recovering/Resolving]
  - Skin discolouration [Recovering/Resolving]
  - Injection site mass [Recovering/Resolving]
  - Diarrhoea [Recovering/Resolving]
  - Inappropriate schedule of product administration [Unknown]

NARRATIVE: CASE EVENT DATE: 20200201
